FAERS Safety Report 5782369-9 (Version None)
Quarter: 2008Q2

REPORT INFORMATION
  Report Type: 
  Country: None (occurrence: None)
  Receive Date: 20080623
  Receipt Date: 20080611
  Transmission Date: 20081010
  Serious: Yes (Other)
  Sender: FDA-Public Use
  Company Number: AU-PFIZER INC-2008041979

PATIENT
  Sex: Female

DRUGS (1)
  1. ZELDOX (CAPSULES) [Suspect]
     Indication: SCHIZOPHRENIA
     Route: 048
     Dates: start: 20080404, end: 20080405

REACTIONS (6)
  - AKATHISIA [None]
  - DYSARTHRIA [None]
  - GAZE PALSY [None]
  - MUSCLE SPASMS [None]
  - MUSCLE TWITCHING [None]
  - OCULOGYRIC CRISIS [None]
